FAERS Safety Report 8552868-5 (Version None)
Quarter: 2012Q3

REPORT INFORMATION
  Report Type: 
  Country: None (occurrence: None)
  Receive Date: 20120731
  Receipt Date: 20120727
  Transmission Date: 20120928
  Serious: Yes (Other)
  Sender: FDA-Public Use
  Company Number: PHEH2012US014812

PATIENT
  Sex: Female
  Weight: 102.6 kg

DRUGS (1)
  1. DIOVAN HCT [Suspect]
     Dosage: 320 MG, QD

REACTIONS (1)
  - NEUROPATHY PERIPHERAL [None]
